FAERS Safety Report 21168505 (Version 2)
Quarter: 2022Q3

REPORT INFORMATION
  Report Type: Report from Study
  Country: CA (occurrence: CA)
  Receive Date: 20220803
  Receipt Date: 20220912
  Transmission Date: 20221027
  Serious: Yes (Other)
  Sender: FDA-Public Use
  Company Number: CA-Horizon-2020HZN02216

PATIENT

DRUGS (23)
  1. PROCYSBI [Suspect]
     Active Substance: CYSTEAMINE BITARTRATE
     Indication: Cystinosis
     Dosage: FIRST DOSE, QD
     Route: 065
     Dates: start: 20181016
  2. PROCYSBI [Suspect]
     Active Substance: CYSTEAMINE BITARTRATE
     Dosage: 500 MG, BID (FOR 2 WEEKS)
     Route: 065
  3. PROCYSBI [Suspect]
     Active Substance: CYSTEAMINE BITARTRATE
     Dosage: 600 MG, BID (FOR 2 WEEKS)
     Route: 065
  4. PROCYSBI [Suspect]
     Active Substance: CYSTEAMINE BITARTRATE
     Dosage: 700 MG, BID (FOR 2 WEEKS)
  5. PROCYSBI [Suspect]
     Active Substance: CYSTEAMINE BITARTRATE
     Dosage: 800 MG, BID (FOR 2 WEEKS)
  6. PROCYSBI [Suspect]
     Active Substance: CYSTEAMINE BITARTRATE
     Dosage: 900 MG, BID (FOR 2 WEEKS)
  7. PROCYSBI [Suspect]
     Active Substance: CYSTEAMINE BITARTRATE
     Dosage: 1000 MG, BID (FOR 2 WEEKS)
  8. PROCYSBI [Suspect]
     Active Substance: CYSTEAMINE BITARTRATE
     Dosage: 600 MG, BID
     Route: 065
     Dates: start: 20190201
  9. PROCYSBI [Suspect]
     Active Substance: CYSTEAMINE BITARTRATE
     Dosage: 450 MG, BID
     Route: 065
     Dates: start: 20200911
  10. Cysteamine eye drops [Concomitant]
     Indication: Product used for unknown indication
  11. TACROLIMUS [Concomitant]
     Active Substance: TACROLIMUS
     Indication: Product used for unknown indication
  12. MYFORTIC [Concomitant]
     Active Substance: MYCOPHENOLATE SODIUM
     Indication: Product used for unknown indication
  13. SYNTHROID [Concomitant]
     Active Substance: LEVOTHYROXINE SODIUM
     Indication: Product used for unknown indication
  14. VASOTEC [Concomitant]
     Active Substance: ENALAPRIL MALEATE
     Indication: Product used for unknown indication
  15. PROCAINAMIDE HYDROCHLORIDE [Concomitant]
     Active Substance: PROCAINAMIDE HYDROCHLORIDE
     Indication: Product used for unknown indication
  16. VITAMIN D [Concomitant]
     Active Substance: VITAMIN D NOS
     Indication: Product used for unknown indication
  17. CYSTAGON [Concomitant]
     Active Substance: CYSTEAMINE BITARTRATE
     Indication: Product used for unknown indication
     Dosage: 1200 MG, QD
  18. TYLENOL [Concomitant]
     Active Substance: ACETAMINOPHEN
     Indication: Pain
     Dosage: UNK
     Route: 065
  19. COVID-19 VACCINE [Concomitant]
     Indication: Product used for unknown indication
     Dosage: FIRST DOSE
  20. COVID-19 VACCINE [Concomitant]
     Dosage: SECOND DOSE
  21. COVID-19 VACCINE [Concomitant]
     Dosage: THIRD DOSE
     Dates: start: 20210831
  22. COVID-19 VACCINE [Concomitant]
     Dosage: FOURTH DOSE
  23. MODERNA COVID-19 VACCINE [Concomitant]
     Active Substance: ELASOMERAN
     Indication: Prophylaxis

REACTIONS (25)
  - Rib fracture [Not Recovered/Not Resolved]
  - Pneumonia [Recovering/Resolving]
  - Bronchiolitis [Recovering/Resolving]
  - Disease progression [Unknown]
  - Cystinosis [Not Recovered/Not Resolved]
  - Kidney transplant rejection [Unknown]
  - Sinusitis [Recovering/Resolving]
  - Bronchitis [Recovering/Resolving]
  - Ear infection [Recovering/Resolving]
  - COVID-19 [Recovered/Resolved]
  - Illness [Not Recovered/Not Resolved]
  - Myalgia [Unknown]
  - Mobility decreased [Unknown]
  - Sneezing [Recovering/Resolving]
  - Osteoporosis [Not Recovered/Not Resolved]
  - Rib deformity [Not Recovered/Not Resolved]
  - Musculoskeletal chest pain [Not Recovered/Not Resolved]
  - Contusion [Recovered/Resolved]
  - Limb discomfort [Recovered/Resolved]
  - Ageusia [Unknown]
  - Anosmia [Unknown]
  - Headache [Recovered/Resolved]
  - Dizziness [Recovered/Resolved]
  - Fatigue [Recovering/Resolving]
  - Cough [Recovering/Resolving]

NARRATIVE: CASE EVENT DATE: 20210831
